FAERS Safety Report 4928659-0 (Version None)
Quarter: 2006Q1

REPORT INFORMATION
  Report Type: 
  Country: None (occurrence: None)
  Receive Date: 20060227
  Receipt Date: 20060227
  Transmission Date: 20060701
  Serious: Yes (Other)
  Sender: FDA-Public Use
  Company Number: None

PATIENT
  Sex: Male

DRUGS (2)
  1. METHADONE [Suspect]
     Dosage: 15 YEARS AGO
  2. MS CONTIN [Suspect]
     Dosage: 15 MG Q8HRS

REACTIONS (3)
  - CONFUSIONAL STATE [None]
  - GAIT DISTURBANCE [None]
  - NAUSEA [None]
